FAERS Safety Report 5775227-7 (Version None)
Quarter: 2008Q2

REPORT INFORMATION
  Report Type: 
  Country: None (occurrence: None)
  Receive Date: 20080617
  Receipt Date: 20080616
  Transmission Date: 20081010
  Serious: Yes (Hospitalization)
  Sender: FDA-Public Use
  Company Number: D0057708A

PATIENT
  Sex: Male

DRUGS (2)
  1. ELONTRIL [Suspect]
     Indication: DEPRESSION
     Route: 048
  2. LITHIUM CARBONATE [Concomitant]
     Route: 065

REACTIONS (1)
  - DEPRESSION [None]
